FAERS Safety Report 12921038 (Version 1)
Quarter: 2016Q4

REPORT INFORMATION
  Report Type: Spontaneous
  Country: US (occurrence: US)
  Receive Date: 20161105
  Receipt Date: 20161105
  Transmission Date: 20170207
  Serious: Yes (Hospitalization)
  Sender: FDA-Public Use
  Company Number: None

PATIENT
  Age: 16 Year
  Sex: Male
  Weight: 48.9 kg

DRUGS (3)
  1. MICAFUNGIN [Concomitant]
     Active Substance: MICAFUNGIN
  2. TRISENOX [Suspect]
     Active Substance: ARSENIC TRIOXIDE
     Dates: end: 20160910
  3. BACTRIM [Concomitant]
     Active Substance: SULFAMETHOXAZOLE\TRIMETHOPRIM

REACTIONS (4)
  - Rash erythematous [None]
  - Acute promyelocytic leukaemia differentiation syndrome [None]
  - Pyrexia [None]
  - Hypotension [None]

NARRATIVE: CASE EVENT DATE: 20160910
